FAERS Safety Report 17185922 (Version 2)
Quarter: 2020Q1

REPORT INFORMATION
  Report Type: Report from Study
  Country: None (occurrence: US)
  Receive Date: 20191220
  Receipt Date: 20200107
  Transmission Date: 20200409
  Serious: Yes (Hospitalization, Other)
  Sender: FDA-Public Use
  Company Number: US-ABBVIE-19K-163-3199890-00

PATIENT
  Sex: Female

DRUGS (1)
  1. VENCLEXTA [Suspect]
     Active Substance: VENETOCLAX
     Indication: CHRONIC LYMPHOCYTIC LEUKAEMIA
     Route: 048
     Dates: start: 20171117

REACTIONS (6)
  - Memory impairment [Not Recovered/Not Resolved]
  - Peripheral swelling [Recovering/Resolving]
  - Skin ulcer [Recovering/Resolving]
  - Diabetic wound [Recovering/Resolving]
  - Erythema [Recovering/Resolving]
  - Musculoskeletal disorder [Unknown]
